FAERS Safety Report 16348431 (Version 2)
Quarter: 2019Q3

REPORT INFORMATION
  Report Type: Report from Study
  Country: None (occurrence: US)
  Receive Date: 20190523
  Receipt Date: 20190703
  Transmission Date: 20191004
  Serious: Yes (Other)
  Sender: FDA-Public Use
  Company Number: US-ABBVIE-19S-163-2791024-00

PATIENT
  Age: 60 Year
  Sex: Female
  Weight: 49.49 kg

DRUGS (5)
  1. CREON [Suspect]
     Active Substance: PANCRELIPASE AMYLASE\PANCRELIPASE LIPASE\PANCRELIPASE PROTEASE
     Indication: INTESTINAL RESECTION
  2. CREON [Suspect]
     Active Substance: PANCRELIPASE AMYLASE\PANCRELIPASE LIPASE\PANCRELIPASE PROTEASE
     Indication: DUODENECTOMY
  3. CREON [Suspect]
     Active Substance: PANCRELIPASE AMYLASE\PANCRELIPASE LIPASE\PANCRELIPASE PROTEASE
     Indication: DYSPEPSIA
     Dosage: FIVE CAPSULES WITH MEALS AND TWO CAPSULES WITH SNACK
     Route: 048
     Dates: start: 2004
  4. CREON [Suspect]
     Active Substance: PANCRELIPASE AMYLASE\PANCRELIPASE LIPASE\PANCRELIPASE PROTEASE
     Indication: PANCREATIC INJURY
     Dosage: INCREASED DOSE
     Route: 048
  5. IRON [Concomitant]
     Active Substance: IRON
     Indication: PRODUCT USED FOR UNKNOWN INDICATION

REACTIONS (17)
  - Blood iron decreased [Recovered/Resolved]
  - Adenomatous polyposis coli [Unknown]
  - Diastolic dysfunction [Unknown]
  - Hyperkalaemia [Unknown]
  - Irritable bowel syndrome [Unknown]
  - Hyperparathyroidism secondary [Unknown]
  - Peripheral arterial occlusive disease [Unknown]
  - Gastrooesophageal reflux disease [Unknown]
  - Chronic kidney disease [Unknown]
  - Chronic kidney disease [Unknown]
  - Hypoalbuminaemia [Not Recovered/Not Resolved]
  - Nephrogenic anaemia [Unknown]
  - Insomnia [Unknown]
  - Pancreatitis acute [Unknown]
  - Osteoarthritis [Unknown]
  - Osteopenia [Unknown]
  - Seasonal allergy [Unknown]

NARRATIVE: CASE EVENT DATE: 20111014
